FAERS Safety Report 24922025 (Version 2)
Quarter: 2025Q1

REPORT INFORMATION
  Report Type: Report from Study
  Country: US (occurrence: US)
  Receive Date: 20250204
  Receipt Date: 20250206
  Transmission Date: 20250408
  Serious: Yes (Other)
  Sender: RANBAXY
  Company Number: US-SUN PHARMACEUTICAL INDUSTRIES LTD-2022R1-349579

PATIENT
  Age: 71 Year
  Sex: Female
  Weight: 58.05 kg

DRUGS (8)
  1. TILDRAKIZUMAB [Suspect]
     Active Substance: TILDRAKIZUMAB
     Indication: Psoriasis
     Route: 058
     Dates: start: 20200729
  2. XANAX [Concomitant]
     Active Substance: ALPRAZOLAM
     Indication: Product used for unknown indication
     Route: 065
  3. DOXYCYCLINE [Concomitant]
     Active Substance: DOXYCYCLINE
     Indication: Product used for unknown indication
     Route: 065
  4. COVID-19 Vaccine [Concomitant]
     Indication: Product used for unknown indication
     Route: 065
     Dates: start: 20210206
  5. COVID-19 Vaccine [Concomitant]
     Route: 065
     Dates: start: 20210306
  6. COVID-19 Vaccine [Concomitant]
     Route: 065
     Dates: start: 20211025
  7. COVID-19 Vaccine [Concomitant]
     Route: 065
     Dates: start: 20220423
  8. ZORYVE [Concomitant]
     Active Substance: ROFLUMILAST
     Indication: Product used for unknown indication
     Route: 065

REACTIONS (2)
  - Urinary tract infection [Unknown]
  - Coronavirus infection [Recovered/Resolved]

NARRATIVE: CASE EVENT DATE: 20220627
